FAERS Safety Report 13986294 (Version 3)
Quarter: 2017Q3

REPORT INFORMATION
  Report Type: Report from Study
  Country: US (occurrence: US)
  Receive Date: 20170919
  Receipt Date: 20170930
  Transmission Date: 20171128
  Serious: Yes (Death, Hospitalization, Other)
  Sender: FDA-Public Use
  Company Number: US-TESARO, INC-US-2017TSO02826

PATIENT

DRUGS (1)
  1. ZEJULA [Suspect]
     Active Substance: NIRAPARIB
     Indication: OVARIAN CANCER
     Dosage: 300 MG, QD
     Route: 048
     Dates: start: 20170828, end: 20170919

REACTIONS (6)
  - Death [Fatal]
  - Vaginal haemorrhage [Not Recovered/Not Resolved]
  - Hospitalisation [Unknown]
  - Haematuria [Not Recovered/Not Resolved]
  - Tumour haemorrhage [Unknown]
  - Asthenia [Not Recovered/Not Resolved]

NARRATIVE: CASE EVENT DATE: 20170919
